FAERS Safety Report 10699129 (Version 9)
Quarter: 2016Q4

REPORT INFORMATION
  Report Type: Spontaneous
  Country: US (occurrence: US)
  Receive Date: 20150108
  Receipt Date: 20161014
  Transmission Date: 20170206
  Serious: Yes (Death, Hospitalization, Other)
  Sender: FDA-Public Use
  Company Number: US-PFIZER INC-2015005086

PATIENT
  Age: 72 Year
  Sex: Female
  Weight: 58 kg

DRUGS (3)
  1. REVATIO [Suspect]
     Active Substance: SILDENAFIL CITRATE
     Indication: PULMONARY HYPERTENSION
     Dosage: 20 MG, 3X/DAY
     Route: 048
  2. REVATIO [Suspect]
     Active Substance: SILDENAFIL CITRATE
     Indication: PULMONARY FIBROSIS
     Dosage: 20 MG, 3X/DAY
     Route: 048
  3. REVATIO [Suspect]
     Active Substance: SILDENAFIL CITRATE
     Dosage: 20 MG, 3X/DAY
     Route: 048

REACTIONS (17)
  - Cystic fibrosis [Unknown]
  - Condition aggravated [Unknown]
  - Fall [Unknown]
  - Atrial fibrillation [Unknown]
  - Dyspnoea [Unknown]
  - Drug effect incomplete [Not Recovered/Not Resolved]
  - Spinal fracture [Unknown]
  - Death [Fatal]
  - Hip fracture [Recovered/Resolved]
  - Pharyngeal disorder [Unknown]
  - Pulmonary fibrosis [Unknown]
  - Malaise [Recovered/Resolved]
  - Fall [Recovered/Resolved]
  - Aspiration [Unknown]
  - Cardiac disorder [Unknown]
  - Spinal pain [Unknown]
  - Atrial flutter [Unknown]

NARRATIVE: CASE EVENT DATE: 2015
